FAERS Safety Report 21649755 (Version 1)
Quarter: 2022Q4

REPORT INFORMATION
  Report Type: Spontaneous
  Country: US (occurrence: US)
  Receive Date: 20221128
  Receipt Date: 20221128
  Transmission Date: 20230113
  Serious: Yes (Other)
  Sender: FDA-Public Use
  Company Number: US-BioHaven Pharmaceuticals-2022BHV003277

PATIENT
  Age: 38 Year
  Sex: Female
  Weight: 59.020 kg

DRUGS (5)
  1. NURTEC ODT [Suspect]
     Active Substance: RIMEGEPANT SULFATE
     Indication: Migraine
     Dosage: PATIENT ONLY TOOK NURTEC ODT TWICE
     Route: 048
     Dates: start: 20221118, end: 20221120
  2. DICLOFENAC [Concomitant]
     Active Substance: DICLOFENAC
     Indication: Product used for unknown indication
     Route: 065
  3. INTRAROSA [Concomitant]
     Active Substance: PRASTERONE
     Indication: Product used for unknown indication
     Route: 065
  4. TIZANIDINE [Concomitant]
     Active Substance: TIZANIDINE
     Indication: Product used for unknown indication
     Route: 065
  5. PREGABALIN [Concomitant]
     Active Substance: PREGABALIN
     Indication: Product used for unknown indication
     Route: 065

REACTIONS (9)
  - Urinary retention [Recovered/Resolved]
  - Kidney infection [Unknown]
  - Urinary tract infection [Unknown]
  - Adverse drug reaction [Unknown]
  - Insomnia [Unknown]
  - Bladder pain [Unknown]
  - Drug ineffective [Unknown]
  - Migraine [Unknown]
  - Panic reaction [Unknown]

NARRATIVE: CASE EVENT DATE: 20221101
